FAERS Safety Report 10936463 (Version 1)
Quarter: 2015Q1

REPORT INFORMATION
  Report Type: Report from Study
  Country: CA (occurrence: CA)
  Receive Date: 20150321
  Receipt Date: 20150321
  Transmission Date: 20150721
  Serious: Yes (Death)
  Sender: FDA-Public Use
  Company Number: CA-BIOGENIDEC-2015BI035977

PATIENT
  Sex: Female

DRUGS (1)
  1. FAMPYRA [Suspect]
     Active Substance: DALFAMPRIDINE
     Indication: GAIT DISTURBANCE
     Route: 048
     Dates: start: 20120418

REACTIONS (1)
  - Death [Fatal]
